FAERS Safety Report 9495051 (Version 1)
Quarter: 2013Q3

REPORT INFORMATION
  Report Type: Spontaneous
  Country: US (occurrence: None)
  Receive Date: 20130828
  Receipt Date: 20130828
  Transmission Date: 20140515
  Serious: Yes (Hospitalization)
  Sender: FDA-Public Use
  Company Number: JPI-P-034810

PATIENT
  Age: 69 Year
  Sex: Female

DRUGS (1)
  1. XYREM [Suspect]
     Indication: NARCOLEPSY
     Dosage: 4 GM (2 GM,2 IN 1 D),ORAL
     Route: 048
     Dates: start: 20041207

REACTIONS (3)
  - Spinal fusion surgery [None]
  - Spinal column stenosis [None]
  - Condition aggravated [None]
